FAERS Safety Report 25003627 (Version 1)
Quarter: 2025Q1

REPORT INFORMATION
  Report Type: Spontaneous
  Country: KR (occurrence: KR)
  Receive Date: 20250224
  Receipt Date: 20250224
  Transmission Date: 20250408
  Serious: Yes (Other)
  Sender: EISAI
  Company Number: KR-EISAI-10787523

PATIENT
  Age: 53 Year
  Sex: Male

DRUGS (2)
  1. LENVIMA [Suspect]
     Active Substance: LENVATINIB
     Indication: Hepatocellular carcinoma
     Dates: start: 20240111, end: 20240412
  2. SPRINOLACTONE [Concomitant]
     Dates: start: 20240408, end: 20240411

REACTIONS (2)
  - Diarrhoea [Recovering/Resolving]
  - Hyperkalaemia [Recovering/Resolving]

NARRATIVE: CASE EVENT DATE: 20240408
